FAERS Safety Report 5565667-3 (Version None)
Quarter: 2007Q4

REPORT INFORMATION
  Report Type: 
  Country: None (occurrence: None)
  Receive Date: 20071218
  Receipt Date: 20071204
  Transmission Date: 20080405
  Serious: Yes (Hospitalization)
  Sender: FDA-Public Use
  Company Number: GB-RANBAXY-2007RR-11927

PATIENT

DRUGS (2)
  1. RISPERIDONE [Suspect]
     Dosage: 50 MG, UNK
     Route: 030
  2. RISPERIDONE [Suspect]
     Dosage: 8 MG, UNK
     Route: 048

REACTIONS (2)
  - BLOOD PROLACTIN INCREASED [None]
  - WATER INTOXICATION [None]
